FAERS Safety Report 13567491 (Version 8)
Quarter: 2021Q4

REPORT INFORMATION
  Report Type: Spontaneous
  Country: US (occurrence: US)
  Receive Date: 20170522
  Receipt Date: 20211102
  Transmission Date: 20220303
  Serious: Yes (Other)
  Sender: FDA-Public Use
  Company Number: US-PFIZER INC-2017215618

PATIENT
  Age: 69 Year
  Sex: Female
  Weight: 61 kg

DRUGS (27)
  1. XELJANZ XR [Suspect]
     Active Substance: TOFACITINIB CITRATE
     Indication: Rheumatoid arthritis
     Dosage: 11 MG, 1X/DAY
     Route: 048
     Dates: end: 201804
  2. XELJANZ XR [Suspect]
     Active Substance: TOFACITINIB CITRATE
     Dosage: 11 MG, 1X/DAY
     Route: 048
  3. ALLEGRA ALLERGY [Concomitant]
     Active Substance: FEXOFENADINE HYDROCHLORIDE
     Dosage: 180 MG, 1X/DAY
     Route: 048
  4. LEVOTHYROXINE SODIUM [Concomitant]
     Active Substance: LEVOTHYROXINE SODIUM
     Dosage: 125 UG, 1X/DAY (1 TABLET ON AN EMPTY STOMACH IN THE MORNING ORALLY ONCE A DAY)
     Route: 048
  5. ZOFRAN [Concomitant]
     Active Substance: ONDANSETRON HYDROCHLORIDE
     Dosage: 4 MG, AS NEEDED (1TABLET ORALLY AS NEEDED)
     Route: 048
  6. SINGULAIR [Concomitant]
     Active Substance: MONTELUKAST SODIUM
     Dosage: 10 MG, 1X/DAY (1 TABLET IN THE EVENING ORALLY ONCE A DAY)
     Route: 048
  7. CALCIUM\VITAMIN D [Concomitant]
     Active Substance: CALCIUM\VITAMIN D
     Dosage: UNK UNK, 1X/DAY
  8. FISH OIL [Concomitant]
     Active Substance: FISH OIL
     Dosage: 1000 MG, 1X/DAY
     Route: 048
  9. NASONEX [Concomitant]
     Active Substance: MOMETASONE FUROATE
     Dosage: 200 UG, 1X/DAY (2 SPRAYS IN EACH NOSTRIL NASALLY ONCE A DAY)
     Route: 045
  10. FAMOTIDINE [Concomitant]
     Active Substance: FAMOTIDINE
     Dosage: 20 MG, AS NEEDED (1 TABLET AS NEEDED ORALLY 3XS A WEEK)
     Route: 048
  11. VITAMIN D [Concomitant]
     Active Substance: VITAMIN D NOS
     Dosage: 50000 IU, WEEKLY (ONCE A WEEK)
     Route: 048
  12. SPIRONOLACTONE [Concomitant]
     Active Substance: SPIRONOLACTONE
     Dosage: 100 MG, 1X/DAY
     Route: 048
  13. PILOCARPINE HYDROCHLORIDE [Concomitant]
     Active Substance: PILOCARPINE HYDROCHLORIDE
     Dosage: 5 MG, 3X/DAY
     Route: 048
  14. ATROVENT [Concomitant]
     Active Substance: IPRATROPIUM BROMIDE
     Dosage: UNK UNK, AS NEEDED (2 APPLICATIONS IN EACH NOSTRIL NASALLY AS NEEDED)
     Route: 045
  15. IBUPROFEN [Concomitant]
     Active Substance: IBUPROFEN
     Dosage: 800 MG, AS NEEDED (1 TABLET ORALLY THREE TIMES A DAY PRN)
     Route: 048
  16. AQUORAL [Concomitant]
     Dosage: UNK UNK, AS NEEDED (1-2 SPRAY MOUTH/THROAT AS NEEDED)
     Route: 055
  17. ABREVA [Concomitant]
     Active Substance: DOCOSANOL
     Dosage: UNK UNK, AS NEEDED (AS DIRECTED EXTERNALLY PRN)
  18. DELSYM [Concomitant]
     Active Substance: DEXTROMETHORPHAN
     Dosage: 10 ML, AS NEEDED
     Route: 048
  19. DULCOLAX NOS [Concomitant]
     Active Substance: BISACODYL OR DOCUSATE SODIUM
     Dosage: 5 MG, AS NEEDED
     Route: 048
  20. LEVOXYL [Concomitant]
     Active Substance: LEVOTHYROXINE SODIUM
     Dosage: 125 MG, 1X/DAY (1 TABLET ON AN EMPTY STOMACH IN THE MORNING ORALLY ONCE A DAY)
     Route: 048
  21. PREVACID [Concomitant]
     Active Substance: LANSOPRAZOLE
     Dosage: 30 MG, 1X/DAY (1 CAPSULE BEFORE A MEAL ORALLY ONCE A DAY)
     Route: 048
  22. ALDACTONE [Concomitant]
     Active Substance: SPIRONOLACTONE
     Dosage: 100 MG, UNK (AS DIRECTED ORALLY)
     Route: 048
  23. FEXOFENADINE HCL [Concomitant]
     Active Substance: FEXOFENADINE HYDROCHLORIDE
     Dosage: 180 MG, 1X/DAY
     Route: 048
  24. ALBUTEROL SULFATE [Concomitant]
     Active Substance: ALBUTEROL SULFATE
     Dosage: 216 UG, AS NEEDED (2 PUFFS AS NEEDED INHALATION EVERY 4 HRS)
     Route: 055
  25. MEDROL [Concomitant]
     Active Substance: METHYLPREDNISOLONE
     Dosage: 4 MG, AS NEEDED
     Route: 048
  26. LANSOPRAZOLE [Concomitant]
     Active Substance: LANSOPRAZOLE
     Dosage: 30 MG, 1X/DAY
     Route: 048
  27. CARAFATE [Concomitant]
     Active Substance: SUCRALFATE
     Dosage: 1 G, 4X/DAY (1 TABLET ON AN EMPTY STOMACH ORALLY FOUR TIMES A DAY)
     Route: 048

REACTIONS (21)
  - Sjogren^s syndrome [Unknown]
  - Increased tendency to bruise [Unknown]
  - Nocturia [Unknown]
  - Arthralgia [Unknown]
  - Joint stiffness [Unknown]
  - Joint swelling [Unknown]
  - Joint lock [Unknown]
  - Viral infection [Recovered/Resolved]
  - Sinus congestion [Unknown]
  - Hypersensitivity [Unknown]
  - Illness [Unknown]
  - Immune system disorder [Unknown]
  - Dry eye [Unknown]
  - Rash [Unknown]
  - Asthenia [Unknown]
  - Chondrocalcinosis [Unknown]
  - Synovial cyst [Unknown]
  - Body mass index increased [Unknown]
  - Blood pressure increased [Unknown]
  - Intentional product misuse [Unknown]
  - Product prescribing error [Unknown]

NARRATIVE: CASE EVENT DATE: 20180401
